FAERS Safety Report 12478174 (Version 4)
Quarter: 2016Q3

REPORT INFORMATION
  Report Type: Spontaneous
  Country: US (occurrence: US)
  Receive Date: 20160617
  Receipt Date: 20160819
  Transmission Date: 20161109
  Serious: Yes (Other)
  Sender: FDA-Public Use
  Company Number: US-JNJCP-30000340099

PATIENT
  Sex: Male
  Weight: 82 kg

DRUGS (4)
  1. HEART MEDICATIONS [Concomitant]
     Active Substance: UNSPECIFIED INGREDIENT
     Indication: CARDIAC DISORDER
  2. NEUTROGENA ULTRA SHEER SUNSCREEN BROAD SPECTRUM SPF 70 [Suspect]
     Active Substance: AVOBENZONE\HOMOSALATE\OCTISALATE\OCTOCRYLENE\OXYBENZONE
     Indication: PROPHYLAXIS
     Dosage: APPLIED EVERY TWO HOURS, FEW TIMES A DAY
     Route: 061
  3. NEUTROGENA SENSITIVE SKIN SUNBLOCK SPF60 PLUS [Suspect]
     Active Substance: TITANIUM DIOXIDE\ZINC OXIDE
     Indication: PROPHYLAXIS
     Dosage: APPLIED EVERY TWO HOURS, FEW TIMES A DAY
     Route: 061
  4. NEUTROGENA PRODUCTS [Suspect]
     Active Substance: UNSPECIFIED INGREDIENT
     Indication: PROPHYLAXIS
     Dosage: APPLIED EVERY TWO HOURS, FEW TIMES A DAY
     Route: 061

REACTIONS (8)
  - Product lot number issue [Unknown]
  - Product expiration date issue [Unknown]
  - Application site discolouration [Recovered/Resolved]
  - Application site dryness [Recovered/Resolved]
  - Sunburn [Recovered/Resolved]
  - Skin cancer [Recovered/Resolved]
  - Application site swelling [Recovered/Resolved]
  - Drug ineffective [Unknown]
